FAERS Safety Report 9953645 (Version 2)
Quarter: 2014Q3

REPORT INFORMATION
  Report Type: Spontaneous
  Country: US (occurrence: US)
  Receive Date: 20140304
  Receipt Date: 20140704
  Transmission Date: 20150326
  Serious: No
  Sender: FDA-Public Use
  Company Number: US-AMGEN-USASP2013067588

PATIENT
  Age: 77 Year
  Sex: Female

DRUGS (10)
  1. ENBREL [Suspect]
     Active Substance: ETANERCEPT
     Indication: RHEUMATOID ARTHRITIS
     Dosage: 50 MG, ONCE A WEEK
     Route: 058
     Dates: start: 20130830
  2. LEVOTHYROXIN [Concomitant]
     Active Substance: LEVOTHYROXINE
     Dosage: 125 MUG, UNK
  3. ISONIAZID. [Concomitant]
     Active Substance: ISONIAZID
     Dosage: 100 MG, UNK
  4. VITAMIN B6 [Concomitant]
     Active Substance: PYRIDOXINE HYDROCHLORIDE
     Dosage: 250 MG, UNK
  5. MULTIVITAMINS, PLAIN [Concomitant]
     Active Substance: VITAMINS
     Dosage: UNK
  6. FISH OIL [Concomitant]
     Active Substance: FISH OIL
     Dosage: UNK
  7. VITAMIN D3 [Concomitant]
     Active Substance: CHOLECALCIFEROL
     Dosage: 4000 UNIT, UNK
  8. ELIQUIS [Concomitant]
     Active Substance: APIXABAN
     Dosage: 5 MG, UNK
  9. DIGOXIN. [Concomitant]
     Active Substance: DIGOXIN
     Dosage: 0.125 MG, UNK
  10. SULFASALAZINE DELAYED-RELEASE [Concomitant]
     Active Substance: SULFASALAZINE
     Dosage: 500 MG, UNK

REACTIONS (14)
  - Arthritis [Recovered/Resolved]
  - Injection site bruising [Not Recovered/Not Resolved]
  - Injection site haemorrhage [Recovered/Resolved]
  - Dizziness [Recovered/Resolved]
  - Bone disorder [Not Recovered/Not Resolved]
  - Vascular injury [Recovered/Resolved]
  - Injection site reaction [Not Recovered/Not Resolved]
  - Urticaria [Recovered/Resolved]
  - Mobility decreased [Recovered/Resolved]
  - Immune system disorder [Not Recovered/Not Resolved]
  - Asthenia [Recovered/Resolved]
  - Gait disturbance [Not Recovered/Not Resolved]
  - Musculoskeletal discomfort [Not Recovered/Not Resolved]
  - Arthropod bite [Recovered/Resolved]

NARRATIVE: CASE EVENT DATE: 201308
